FAERS Safety Report 9629669 (Version 1)
Quarter: 2013Q4

REPORT INFORMATION
  Report Type: Report from Study
  Country: US (occurrence: US)
  Receive Date: 20131017
  Receipt Date: 20131017
  Transmission Date: 20140711
  Serious: Yes (Other)
  Sender: FDA-Public Use
  Company Number: US-MYLANLABS-2013S1021334

PATIENT
  Age: 25 Year
  Sex: Female
  Weight: 70.31 kg

DRUGS (3)
  1. AMNESTEEM CAPSULES [Suspect]
     Indication: ACNE CYSTIC
     Route: 048
     Dates: start: 20130702, end: 201309
  2. SINGULAR [Concomitant]
     Indication: MULTIPLE ALLERGIES
     Dates: start: 20130910
  3. CLARITIN-D [Concomitant]
     Indication: MULTIPLE ALLERGIES
     Dates: start: 20130910

REACTIONS (2)
  - Dehydration [Not Recovered/Not Resolved]
  - Arthralgia [Not Recovered/Not Resolved]
